FAERS Safety Report 18220915 (Version 2)
Quarter: 2022Q2

REPORT INFORMATION
  Report Type: Report from Study
  Country: US (occurrence: US)
  Receive Date: 20200902
  Receipt Date: 20220622
  Transmission Date: 20220720
  Serious: Yes (Other)
  Sender: FDA-Public Use
  Company Number: US-BRISTOL-MYERS SQUIBB COMPANY-BMS-2020-069879

PATIENT
  Age: 78 Year
  Sex: Female
  Weight: 92.9 kg

DRUGS (2)
  1. ELIQUIS [Suspect]
     Active Substance: APIXABAN
     Indication: Cardiac pacemaker insertion
     Route: 048
     Dates: start: 2017
  2. ELIQUIS [Suspect]
     Active Substance: APIXABAN
     Indication: Cerebrovascular accident prophylaxis

REACTIONS (12)
  - Parkinson^s disease [Unknown]
  - Atrial fibrillation [Unknown]
  - Tremor [Unknown]
  - Dyskinesia [Unknown]
  - Cognitive disorder [Unknown]
  - Cough [Unknown]
  - Stress [Unknown]
  - Amnesia [Unknown]
  - Somnolence [Unknown]
  - Blood cholesterol increased [Unknown]
  - Glucose tolerance impaired [Unknown]
  - Product dose omission issue [Unknown]

NARRATIVE: CASE EVENT DATE: 20200101
